FAERS Safety Report 21762813 (Version 1)
Quarter: 2022Q4

REPORT INFORMATION
  Report Type: Report from Study
  Country: CO (occurrence: CO)
  Receive Date: 20221221
  Receipt Date: 20221221
  Transmission Date: 20230113
  Serious: Yes (Other)
  Sender: FDA-Public Use
  Company Number: CO-ABBVIE-4244402

PATIENT
  Sex: Male
  Weight: 179 kg

DRUGS (2)
  1. HUMIRA [Suspect]
     Active Substance: ADALIMUMAB
     Indication: Psoriatic arthropathy
     Dosage: FORM STRENGTH: 40 MG
     Route: 058
     Dates: end: 2022
  2. HUMIRA [Suspect]
     Active Substance: ADALIMUMAB

REACTIONS (8)
  - Loss of consciousness [Unknown]
  - Weight decreased [Recovering/Resolving]
  - Nephrolithiasis [Unknown]
  - Depression [Recovered/Resolved]
  - Insomnia [Recovering/Resolving]
  - Depression [Recovering/Resolving]
  - Headache [Unknown]
  - Feeling of despair [Unknown]

NARRATIVE: CASE EVENT DATE: 20160101
